FAERS Safety Report 6182489-3 (Version None)
Quarter: 2009Q2

REPORT INFORMATION
  Report Type: 
  Country: None (occurrence: None)
  Receive Date: 20090507
  Receipt Date: 20090427
  Transmission Date: 20091009
  Serious: Yes (Death)
  Sender: FDA-Public Use
  Company Number: NO-ROCHE-630568

PATIENT
  Age: 78 Year
  Sex: Male

DRUGS (6)
  1. TRETINOIN [Suspect]
     Dosage: RECEIVED FOR THE FIRST 14 DAYS; TREATMENT REPEATED EVERY THIRD MONTH.
     Route: 048
  2. VALPROIC ACID [Suspect]
     Dosage: RECEIVED CONTINUOUS INTRAVENOUS INFUSIONS ON DAY 3.
     Route: 042
  3. VALPROIC ACID [Suspect]
     Dosage: DOSAGE GRADUALLY INCREASED.
     Route: 042
  4. VALPROIC ACID [Suspect]
     Route: 048
  5. THEOPHYLLINE [Suspect]
     Dosage: CONTINUOUS IV INFUSION ON DAY 3; DOSE ADJUSTED BASED ON SERUM LEVELS (THERAPEUTIC LEVEL: 50-100 UM)
     Route: 042
  6. THEOPHYLLINE [Suspect]
     Route: 048

REACTIONS (1)
  - MALIGNANT NEOPLASM PROGRESSION [None]
